FAERS Safety Report 11824919 (Version 3)
Quarter: 2016Q4

REPORT INFORMATION
  Report Type: Spontaneous
  Country: LV (occurrence: LV)
  Receive Date: 20151210
  Receipt Date: 20161111
  Transmission Date: 20170206
  Serious: Yes (Hospitalization, Other)
  Sender: FDA-Public Use
  Company Number: LV-ABBVIE-15K-287-1508645-00

PATIENT
  Age: 13 Year
  Sex: Male
  Weight: 67 kg

DRUGS (1)
  1. HUMIRA [Suspect]
     Active Substance: ADALIMUMAB
     Indication: JUVENILE IDIOPATHIC ARTHRITIS
     Dosage: 2 INJECTIONS?24 MG/M2
     Route: 058
     Dates: start: 20151014, end: 20151111

REACTIONS (15)
  - Bone marrow failure [Unknown]
  - Blood product transfusion dependent [Unknown]
  - Respiratory tract infection viral [Unknown]
  - Bone marrow failure [Unknown]
  - Skin discolouration [Unknown]
  - Pancytopenia [Not Recovered/Not Resolved]
  - Aplastic anaemia [Unknown]
  - Leukopenia [Not Recovered/Not Resolved]
  - Transfusion microchimerism [Recovering/Resolving]
  - Joint injury [Unknown]
  - Traumatic haemorrhage [Unknown]
  - Ecchymosis [Unknown]
  - Aplastic anaemia [Unknown]
  - Device related infection [Unknown]
  - Transfusion related complication [Unknown]

NARRATIVE: CASE EVENT DATE: 201511
